FAERS Safety Report 4267247-9 (Version None)
Quarter: 2004Q1

REPORT INFORMATION
  Report Type: 
  Country: None (occurrence: None)
  Receive Date: 20040107
  Receipt Date: 20031230
  Transmission Date: 20041129
  Serious: Yes (Other)
  Sender: FDA-Public Use
  Company Number: 200314866BCC

PATIENT
  Age: 42 Year
  Sex: Male
  Weight: 115.6672 kg

DRUGS (1)
  1. ORIGINAL ALKA-SELTZER TABLET [Suspect]
     Indication: DYSPEPSIA
     Dosage: 650/3832 MG, ONCE , ORAL
     Route: 048
     Dates: start: 20031101

REACTIONS (3)
  - HYPERSENSITIVITY [None]
  - OROPHARYNGEAL SWELLING [None]
  - SNEEZING [None]
